FAERS Safety Report 19783843 (Version 2)
Quarter: 2021Q3

REPORT INFORMATION
  Report Type: Spontaneous
  Country: US (occurrence: US)
  Receive Date: 20210903
  Receipt Date: 20210927
  Transmission Date: 20211014
  Serious: No
  Sender: FDA-Public Use
  Company Number: US-GLAXOSMITHKLINE-USCH2021059373

PATIENT
  Age: 85 Year
  Sex: Male

DRUGS (2)
  1. VOLTAREN ARTHRITIS PAIN [Suspect]
     Active Substance: DICLOFENAC SODIUM
     Indication: GOUT
     Dosage: UNK
  2. VOLTAREN ARTHRITIS PAIN [Suspect]
     Active Substance: DICLOFENAC SODIUM
     Indication: PERIPHERAL SWELLING

REACTIONS (3)
  - Wrong technique in product usage process [Unknown]
  - Off label use [Recovered/Resolved]
  - Product complaint [Unknown]
